FAERS Safety Report 5804836-1 (Version None)
Quarter: 2008Q3

REPORT INFORMATION
  Report Type: 
  Country: None (occurrence: None)
  Receive Date: 20080709
  Receipt Date: 20080604
  Transmission Date: 20090109
  Serious: Yes (Other)
  Sender: FDA-Public Use
  Company Number: US-AVENTIS-200813867US

PATIENT

DRUGS (2)
  1. LOVENOX [Suspect]
     Dates: start: 20080601
  2. COUMADIN [Concomitant]
     Dosage: DOSE: UNK

REACTIONS (1)
  - INTERNATIONAL NORMALISED RATIO INCREASED [None]
